FAERS Safety Report 10975172 (Version 2)
Quarter: 2015Q2

REPORT INFORMATION
  Report Type: Spontaneous
  Country: JP (occurrence: JP)
  Receive Date: 20150401
  Receipt Date: 20150522
  Transmission Date: 20150821
  Serious: Yes (Other)
  Sender: FDA-Public Use
  Company Number: JP-KERYX BIOPHARMACEUTICALS, INC.-2014JP000612

PATIENT

DRUGS (17)
  1. LIVALO [Concomitant]
     Active Substance: PITAVASTATIN CALCIUM
     Indication: HYPERLIPIDAEMIA
     Dosage: 2 MG, UNK
     Route: 048
  2. TRAZENTA [Concomitant]
     Active Substance: LINAGLIPTIN
     Indication: DIABETES MELLITUS
     Dosage: 5 MG, UNK
     Route: 048
     Dates: start: 20121126, end: 20140629
  3. PANALDINE [Concomitant]
     Active Substance: TICLOPIDINE HYDROCHLORIDE
     Dosage: 100 MG, UNK
     Route: 048
  4. REGPARA [Concomitant]
     Active Substance: CINACALCET HYDROCHLORIDE
     Indication: HYPERPARATHYROIDISM SECONDARY
     Dosage: 75 MG, UNK
     Route: 048
  5. FOSRENOL [Concomitant]
     Active Substance: LANTHANUM CARBONATE
     Dosage: 750 MG, UNK
     Route: 048
     Dates: start: 20131212
  6. MUCOSTA [Concomitant]
     Active Substance: REBAMIPIDE
     Indication: CHRONIC GASTRITIS
     Dosage: 100 MG, UNK
     Route: 048
  7. ANCARON [Concomitant]
     Active Substance: AMIODARONE HYDROCHLORIDE
     Indication: VENTRICULAR EXTRASYSTOLES
     Dosage: 100 MG, UNK
     Route: 048
  8. PAXIL [Concomitant]
     Active Substance: PAROXETINE HYDROCHLORIDE
     Dosage: 1 DF, UNK
     Route: 048
     Dates: start: 201404
  9. RIVOTRIL [Concomitant]
     Active Substance: CLONAZEPAM
     Dosage: 1 DF, UNK
     Route: 048
     Dates: start: 201404
  10. FOSRENOL [Concomitant]
     Active Substance: LANTHANUM CARBONATE
     Indication: HYPERPHOSPHATAEMIA
     Dosage: 1500 MG, UNK
     Route: 048
     Dates: start: 20110920
  11. ARTIST [Concomitant]
     Active Substance: CARVEDILOL
     Indication: CONGESTIVE CARDIOMYOPATHY
     Dosage: 5 MG, UNK
     Route: 048
  12. KIKLIN [Concomitant]
     Active Substance: BIXALOMER
     Indication: HYPERPHOSPHATAEMIA
     Dosage: 1500 MG, UNK
     Route: 048
     Dates: start: 20130923, end: 20140624
  13. METHYLCOBALAMIN [Concomitant]
     Active Substance: METHYLCOBALAMIN
     Dosage: 1 DF, UNK
     Route: 048
     Dates: start: 201404
  14. HERBAL EXTRACT NOS [Concomitant]
     Active Substance: HERBALS
     Dosage: 1 DF, UNK
     Route: 048
     Dates: start: 201404
  15. OXAROL [Concomitant]
     Active Substance: MAXACALCITOL
     Dosage: UNK
     Route: 042
     Dates: start: 201404
  16. ZOLPIDEM TARTRATE. [Concomitant]
     Active Substance: ZOLPIDEM TARTRATE
     Dosage: 1 DF, UNK
     Route: 048
     Dates: start: 201404
  17. RIONA [Suspect]
     Active Substance: FERRIC CITRATE ANHYDROUS
     Indication: HYPERPHOSPHATAEMIA
     Dosage: 500 MG, TID
     Route: 048
     Dates: start: 20140625, end: 20140725

REACTIONS (1)
  - Polycythaemia [Recovering/Resolving]

NARRATIVE: CASE EVENT DATE: 20140709
